FAERS Safety Report 6432081-8 (Version None)
Quarter: 2009Q4

REPORT INFORMATION
  Report Type: 
  Country: None (occurrence: None)
  Receive Date: 20091109
  Receipt Date: 20091028
  Transmission Date: 20100525
  Serious: Yes (Other)
  Sender: FDA-Public Use
  Company Number: US-ROCHE-665680

PATIENT
  Age: 5 Year
  Sex: Male

DRUGS (2)
  1. TAMIFLU [Suspect]
     Indication: INFLUENZA
     Route: 048
     Dates: start: 20091027, end: 20091028
  2. TYLENOL [Concomitant]

REACTIONS (5)
  - COMMUNICATION DISORDER [None]
  - DYSKINESIA [None]
  - MENTAL DISORDER [None]
  - MOANING [None]
  - TREMOR [None]
